FAERS Safety Report 8149585-2 (Version None)
Quarter: 2012Q1

REPORT INFORMATION
  Report Type: 
  Country: None (occurrence: None)
  Receive Date: 20120218
  Receipt Date: 20111114
  Transmission Date: 20120608
  Serious: No
  Sender: FDA-Public Use
  Company Number: US-ALLERGAN-1107727US

PATIENT
  Age: 58 Year
  Sex: Female
  Weight: 115 kg

DRUGS (3)
  1. BOTOX COSMETIC [Suspect]
     Indication: SKIN WRINKLING
     Dosage: 25 UNITS, SINGLE
     Route: 030
     Dates: start: 20110504, end: 20110504
  2. BOTOX COSMETIC [Suspect]
     Dosage: 5 UNITS, SINGLE
     Route: 030
     Dates: start: 20110518, end: 20110518
  3. JUVEDERM [Concomitant]
     Indication: SKIN WRINKLING
     Dosage: UNK (HALF A SYRINGE)
     Dates: start: 20110504, end: 20110504

REACTIONS (2)
  - SKIN TIGHTNESS [None]
  - FACIAL PARESIS [None]
